FAERS Safety Report 16966528 (Version 3)
Quarter: 2020Q2

REPORT INFORMATION
  Report Type: Report from Study
  Country: BR (occurrence: BR)
  Receive Date: 20191028
  Receipt Date: 20200505
  Transmission Date: 20200713
  Serious: Yes (Other)
  Sender: FDA-Public Use
  Company Number: PHHY2018BR174504

PATIENT
  Age: 32 Year
  Sex: Female
  Weight: 75 kg

DRUGS (4)
  1. COSENTYX [Suspect]
     Active Substance: SECUKINUMAB
     Dosage: 300 MG, QMO
     Route: 058
     Dates: start: 20181010
  2. COSENTYX [Suspect]
     Active Substance: SECUKINUMAB
     Dosage: UNK
     Route: 065
     Dates: start: 20191107
  3. COSENTYX [Suspect]
     Active Substance: SECUKINUMAB
     Indication: PSORIATIC ARTHROPATHY
     Dosage: UNK
     Route: 065
     Dates: start: 20180627
  4. COSENTYX [Suspect]
     Active Substance: SECUKINUMAB
     Indication: PSORIASIS
     Dosage: 300 MG, QMO
     Route: 058
     Dates: start: 201807

REACTIONS (18)
  - Hypersensitivity [Not Recovered/Not Resolved]
  - Corneal infection [Unknown]
  - Macule [Not Recovered/Not Resolved]
  - Pain [Unknown]
  - Pruritus [Recovering/Resolving]
  - Furuncle [Unknown]
  - Sinusitis [Unknown]
  - Pharyngitis [Unknown]
  - Arthralgia [Recovering/Resolving]
  - Bone pain [Recovering/Resolving]
  - Psoriasis [Unknown]
  - Wound [Recovering/Resolving]
  - Coccydynia [Recovering/Resolving]
  - Back pain [Recovering/Resolving]
  - Ear infection [Unknown]
  - Decreased immune responsiveness [Unknown]
  - Pain of skin [Recovering/Resolving]
  - Keratoconus [Unknown]

NARRATIVE: CASE EVENT DATE: 201810
